FAERS Safety Report 4294100-7 (Version None)
Quarter: 2004Q1

REPORT INFORMATION
  Report Type: 
  Country: None (occurrence: None)
  Receive Date: 20040212
  Receipt Date: 20040212
  Transmission Date: 20041129
  Serious: Yes (Other)
  Sender: FDA-Public Use
  Company Number: None

PATIENT
  Sex: Female
  Weight: 62.5964 kg

DRUGS (1)
  1. ZICAM 8.5 OZ./15ML ZICAM LLC [Suspect]
     Indication: NASOPHARYNGITIS
     Dosage: 2 DOSES 2 TIMES NASAL
     Route: 045
     Dates: start: 20040130, end: 20040131

REACTIONS (2)
  - AGEUSIA [None]
  - ANOSMIA [None]
